FAERS Safety Report 11330234 (Version 1)
Quarter: 2015Q3

REPORT INFORMATION
  Report Type: Spontaneous
  Country: CH (occurrence: CH)
  Receive Date: 20150803
  Receipt Date: 20150803
  Transmission Date: 20151125
  Serious: Yes (Hospitalization, Disabling)
  Sender: FDA-Public Use
  Company Number: CH-MEDA-2015070088

PATIENT
  Age: 76 Year
  Sex: Female

DRUGS (9)
  1. SYMBICORT [Concomitant]
     Active Substance: BUDESONIDE\FORMOTEROL FUMARATE DIHYDRATE
  2. CALCIMAGON-D 3 FORTE [Concomitant]
  3. XANAX [Concomitant]
     Active Substance: ALPRAZOLAM
  4. PLATINOL [Suspect]
     Active Substance: CISPLATIN
     Indication: LUNG NEOPLASM MALIGNANT
     Dosage: ADMINISTERED ON 21MAY2015, 11JUN2015, AND 18JUN2015
     Route: 041
     Dates: start: 20150521, end: 20150618
  5. CONCOR [Concomitant]
     Active Substance: BISOPROLOL FUMARATE
  6. TOREM 5 MG [Suspect]
     Active Substance: TORSEMIDE
     Route: 048
     Dates: end: 20150625
  7. ATORVASTATIN PFIZER 80 MG [Concomitant]
  8. ASPIRIN CARDIO [Concomitant]
     Active Substance: ASPIRIN
  9. ELTROXIN LF [Concomitant]

REACTIONS (1)
  - Acute kidney injury [Recovering/Resolving]

NARRATIVE: CASE EVENT DATE: 20150625
